FAERS Safety Report 23175640 (Version 2)
Quarter: 2023Q4

REPORT INFORMATION
  Report Type: Spontaneous
  Country: FR (occurrence: FR)
  Receive Date: 20231113
  Receipt Date: 20231213
  Transmission Date: 20240110
  Serious: Yes (Death, Other)
  Sender: FDA-Public Use
  Company Number: FR-Accord-387323

PATIENT
  Age: 70 Year
  Sex: Male
  Weight: 64 kg

DRUGS (8)
  1. CARBOPLATIN [Suspect]
     Active Substance: CARBOPLATIN
     Indication: Squamous cell carcinoma of head and neck
     Dosage: UNK (5 AUC, 1Q3W)
     Route: 065
     Dates: start: 20230906, end: 20230906
  2. CARBOPLATIN [Suspect]
     Active Substance: CARBOPLATIN
     Dosage: UNK (4 AUC, 1Q3W)
     Route: 065
     Dates: start: 20230927, end: 20230927
  3. FLUOROURACIL [Suspect]
     Active Substance: FLUOROURACIL
     Indication: Squamous cell carcinoma of head and neck
     Dosage: 1000 MILLIGRAM/SQ. METER (1000 MILLIGRAM/SQ METER/DAY D1-D4, 1Q3W)
     Route: 065
     Dates: start: 20230906, end: 20230910
  4. FLUOROURACIL [Suspect]
     Active Substance: FLUOROURACIL
     Dosage: 800 MILLIGRAM/SQ. METER (800 MILLIGRAM/SQ METER/DAY D1-D4, 1Q3W)
     Route: 065
     Dates: start: 20230927, end: 20231001
  5. MORPHINE [Suspect]
     Active Substance: MORPHINE
     Indication: Tumour pain
     Dosage: UNK
     Route: 062
     Dates: start: 202308
  6. PEMBROLIZUMAB [Suspect]
     Active Substance: PEMBROLIZUMAB
     Indication: Squamous cell carcinoma of head and neck
     Dosage: 200 MILLIGRAM (200 MILLIGRAM, 1Q3W)
     Route: 065
     Dates: start: 20230906, end: 20230927
  7. METHYLPREDNISOLONE [Concomitant]
     Active Substance: METHYLPREDNISOLONE
     Indication: Product used for unknown indication
     Dosage: UNK
     Route: 065
     Dates: start: 20230906, end: 20230927
  8. ONDANSETRON [Concomitant]
     Active Substance: ONDANSETRON
     Indication: Product used for unknown indication
     Dosage: UNK
     Route: 065
     Dates: start: 20230906, end: 20230927

REACTIONS (2)
  - General physical health deterioration [Fatal]
  - Depression [Not Recovered/Not Resolved]

NARRATIVE: CASE EVENT DATE: 20230908
